FAERS Safety Report 22278198 (Version 2)
Quarter: 2023Q2

REPORT INFORMATION
  Report Type: Report from Study
  Country: US (occurrence: US)
  Receive Date: 20230503
  Receipt Date: 20230614
  Transmission Date: 20230722
  Serious: Yes (Death, Hospitalization)
  Sender: FDA-Public Use
  Company Number: US-Vifor (International) Inc.-VIT-2023-02325

PATIENT
  Age: 59 Year
  Sex: Male
  Weight: 75 kg

DRUGS (3)
  1. VELPHORO [Suspect]
     Active Substance: SUCROFERRIC OXYHYDROXIDE
     Indication: Blood phosphorus abnormal
     Dosage: 1 TABLET PO TID WITH MEALS
     Route: 048
     Dates: start: 20221024
  2. VENOFER [Concomitant]
     Active Substance: IRON SUCROSE
     Indication: Iron deficiency anaemia
     Dosage: GIVEN THREE TIMES A WEEK WITH DIALYSIS
     Route: 042
     Dates: start: 20210920, end: 20230310
  3. VENOFER [Concomitant]
     Active Substance: IRON SUCROSE
     Dosage: 5050 MG TOTAL DOSE IN LAST 12 MONTHS
     Route: 042
     Dates: start: 202109

REACTIONS (4)
  - Syncope [Fatal]
  - Circulatory collapse [Fatal]
  - Endocarditis [Unknown]
  - Product dose omission issue [Unknown]

NARRATIVE: CASE EVENT DATE: 20220301
